FAERS Safety Report 26215242 (Version 1)
Quarter: 2025Q4

REPORT INFORMATION
  Report Type: Spontaneous
  Country: EU (occurrence: EU)
  Receive Date: 20251230
  Receipt Date: 20251230
  Transmission Date: 20260118
  Serious: Yes (Hospitalization, Other)
  Sender: ALKEM
  Company Number: EU-ALKEM LABORATORIES LIMITED-DE-ALKEM-2025-14300

PATIENT
  Age: 70 Year
  Sex: Male
  Weight: 62 kg

DRUGS (18)
  1. QUETIAPINE FUMARATE [Suspect]
     Active Substance: QUETIAPINE FUMARATE
     Indication: Product used for unknown indication
     Dosage: UNK
     Route: 065
  2. DOXEPIN [Suspect]
     Active Substance: DOXEPIN
     Indication: Product used for unknown indication
     Dosage: 50 MILLIGRAM, QD
     Route: 065
  3. DOXEPIN [Suspect]
     Active Substance: DOXEPIN
     Dosage: 50 MILLIGRAM, BID
     Route: 065
  4. DOXEPIN [Suspect]
     Active Substance: DOXEPIN
     Dosage: 100 MILLIGRAM, QD
     Route: 065
  5. DALFAMPRIDINE [Suspect]
     Active Substance: DALFAMPRIDINE
     Indication: Product used for unknown indication
     Dosage: UNK, BID
     Route: 065
  6. DALFAMPRIDINE [Suspect]
     Active Substance: DALFAMPRIDINE
     Dosage: 10 MILLIGRAM, BID
     Route: 065
  7. OCREVUS [Suspect]
     Active Substance: OCRELIZUMAB
     Indication: Primary progressive multiple sclerosis
     Dosage: 300 MILLIGRAM
     Route: 042
  8. OCREVUS [Suspect]
     Active Substance: OCRELIZUMAB
     Dosage: 600 MILLIGRAM (EVERY 156 DAY)
     Route: 042
  9. OCREVUS [Suspect]
     Active Substance: OCRELIZUMAB
     Dosage: 600 MILLIGRAM
     Route: 042
  10. OCREVUS [Suspect]
     Active Substance: OCRELIZUMAB
     Dosage: 600 MILLIGRAM
     Route: 042
  11. OCREVUS [Suspect]
     Active Substance: OCRELIZUMAB
     Dosage: 600 MILLIGRAM
     Route: 042
  12. OCREVUS [Suspect]
     Active Substance: OCRELIZUMAB
     Dosage: 600 MILLIGRAM (EVERY 261 DAY)
     Route: 042
  13. OCREVUS [Suspect]
     Active Substance: OCRELIZUMAB
     Dosage: 600 MILLIGRAM
     Route: 042
  14. OCREVUS [Suspect]
     Active Substance: OCRELIZUMAB
     Dosage: 600 MILLIGRAM (EVERY 253 DAY)
     Route: 042
  15. AMANTADINE [Concomitant]
     Active Substance: AMANTADINE
     Indication: Product used for unknown indication
     Dosage: 100 MILLIGRAM, BID
     Route: 065
  16. LEVODOPA [Concomitant]
     Active Substance: LEVODOPA
     Indication: Product used for unknown indication
     Dosage: UNK, QD
     Route: 065
  17. NEUPRO [Concomitant]
     Active Substance: ROTIGOTINE
     Indication: Product used for unknown indication
     Dosage: UNK
     Route: 065
  18. TAMSULOSIN [Concomitant]
     Active Substance: TAMSULOSIN
     Indication: Product used for unknown indication
     Dosage: 0.4 MILLIGRAM, QD
     Route: 065

REACTIONS (35)
  - Bladder cancer [Not Recovered/Not Resolved]
  - Gallbladder cancer [Recovered/Resolved]
  - Ventricular fibrillation [Not Recovered/Not Resolved]
  - Inguinal hernia [Recovered/Resolved]
  - Cystitis noninfective [Not Recovered/Not Resolved]
  - Hallucination [Recovered/Resolved]
  - Muscular weakness [Recovered/Resolved]
  - Pneumonia [Not Recovered/Not Resolved]
  - Pain in extremity [Recovered/Resolved]
  - Contusion [Recovered/Resolved]
  - Gait disturbance [Not Recovered/Not Resolved]
  - Chest pain [Not Recovered/Not Resolved]
  - Wound [Recovered/Resolved]
  - Rhinorrhoea [Recovered/Resolved]
  - Arthropod bite [Recovering/Resolving]
  - Fluid retention [Recovering/Resolving]
  - Defaecation urgency [Not Recovered/Not Resolved]
  - Erythema [Not Recovered/Not Resolved]
  - Weight decreased [Not Recovered/Not Resolved]
  - Peripheral swelling [Recovering/Resolving]
  - Onychomycosis [Recovering/Resolving]
  - Sleep disorder [Not Recovered/Not Resolved]
  - Muscle spasms [Recovered/Resolved]
  - Headache [Recovered/Resolved]
  - Initial insomnia [Recovered/Resolved]
  - Fall [Unknown]
  - Rib fracture [Recovered/Resolved]
  - Back pain [Recovered/Resolved]
  - Fatigue [Not Recovered/Not Resolved]
  - Movement disorder [Recovered/Resolved]
  - Middle insomnia [Recovered/Resolved]
  - Nasal congestion [Recovered/Resolved]
  - Dry mouth [Recovered/Resolved]
  - Arthralgia [Recovered/Resolved]
  - Balance disorder [Not Recovered/Not Resolved]

NARRATIVE: CASE EVENT DATE: 20180613
